FAERS Safety Report 8248588-7 (Version None)
Quarter: 2012Q1

REPORT INFORMATION
  Report Type: 
  Country: None (occurrence: None)
  Receive Date: 20120330
  Receipt Date: 20120321
  Transmission Date: 20120608
  Serious: Yes (Hospitalization, Other)
  Sender: FDA-Public Use
  Company Number: US-ASTRAZENECA-2011SE58149

PATIENT
  Age: 48 Year
  Sex: Female

DRUGS (17)
  1. NEXIUM [Suspect]
     Route: 048
  2. ZESTRIL [Suspect]
     Route: 048
  3. NEURONTIN [Concomitant]
  4. AMARYL [Concomitant]
  5. ASPIRIN [Concomitant]
  6. LASIX [Concomitant]
  7. METFORMIN HCL [Concomitant]
  8. NICOTINE [Concomitant]
  9. AVELOX [Concomitant]
  10. CYMBALTA [Concomitant]
  11. ZOCOR [Concomitant]
  12. LEVEMIR [Concomitant]
     Dosage: 28 UNITS DAILY
  13. PREDNISONE TAB [Concomitant]
     Dosage: TAPERING DOSE 60 MG DAILY
  14. MYCELEX [Concomitant]
     Indication: ORAL CANDIDIASIS
  15. ATROVENT [Concomitant]
     Dosage: NEUBILIZER QID PRN
  16. ALBUTEROL [Concomitant]
     Dosage: NEUBILIZER QID PRN
  17. MOBIC [Concomitant]

REACTIONS (9)
  - TYPE 2 DIABETES MELLITUS [None]
  - ORAL CANDIDIASIS [None]
  - CARDIAC FAILURE ACUTE [None]
  - PERIPHERAL ARTERIAL OCCLUSIVE DISEASE [None]
  - HYPERTENSION [None]
  - CHRONIC OBSTRUCTIVE PULMONARY DISEASE [None]
  - PNEUMONIA [None]
  - NEUROPATHY PERIPHERAL [None]
  - HYPERLIPIDAEMIA [None]
